FAERS Safety Report 17080944 (Version 1)
Quarter: 2019Q4

REPORT INFORMATION
  Report Type: Spontaneous
  Country: FR (occurrence: FR)
  Receive Date: 20191127
  Receipt Date: 20191127
  Transmission Date: 20200122
  Serious: Yes (Hospitalization, Other)
  Sender: FDA-Public Use
  Company Number: FR-PFIZER INC-2019509419

PATIENT
  Age: 93 Year
  Sex: Male
  Weight: 64 kg

DRUGS (9)
  1. AMIODARONE HCL [Suspect]
     Active Substance: AMIODARONE HYDROCHLORIDE
     Indication: ARRHYTHMIA
     Dosage: 200 MG, 1X/DAY (QD)
     Route: 048
     Dates: start: 20190904
  2. SERESTA [Suspect]
     Active Substance: OXAZEPAM
     Dosage: 10 MG, 1X/DAY (QD)
     Route: 048
     Dates: start: 20190904
  3. COLCHICINE. [Suspect]
     Active Substance: COLCHICINE
     Dosage: 1 MG, 1X/DAY (QD)
     Route: 048
     Dates: start: 20190912, end: 20190916
  4. MOVICOL [Suspect]
     Active Substance: POLYETHYLENE GLYCOL 3350\POTASSIUM CHLORIDE\SODIUM BICARBONATE\SODIUM CHLORIDE
     Indication: CONSTIPATION
     Dosage: 3 DF, 1X/DAY (QD)
     Route: 048
     Dates: start: 20190905, end: 20190910
  5. PANTOPRAZOLE [Suspect]
     Active Substance: PANTOPRAZOLE
     Indication: HIATUS HERNIA
     Dosage: 20 MG, 1X/DAY (QD)
     Route: 048
     Dates: start: 20190904
  6. ACIDE FOLIQUE [Suspect]
     Active Substance: FOLIC ACID
     Dosage: 5 MG, 1X/DAY (QD)
     Route: 048
     Dates: start: 20190905
  7. BISOCE [Suspect]
     Active Substance: BISOPROLOL
     Indication: CARDIAC FAILURE
     Dosage: 1.25 MG, 1X/DAY (QD)
     Route: 048
     Dates: start: 20190905
  8. FRAXIPARINE [Suspect]
     Active Substance: NADROPARIN CALCIUM
     Indication: PROPHYLAXIS
     Dosage: 3800 IU, 1X/DAY (QD)
     Route: 058
     Dates: start: 20190904
  9. NEFOPAM [NEFOPAM HYDROCHLORIDE] [Suspect]
     Active Substance: NEFOPAM HYDROCHLORIDE
     Indication: PAIN
     Dosage: 20 MG, 4X/DAY (QID)
     Route: 042
     Dates: start: 20190904

REACTIONS (1)
  - Neutropenia [Not Recovered/Not Resolved]

NARRATIVE: CASE EVENT DATE: 20190924
